FAERS Safety Report 14768611 (Version 1)
Quarter: 2018Q2

REPORT INFORMATION
  Report Type: Spontaneous
  Country: RO (occurrence: RO)
  Receive Date: 20180417
  Receipt Date: 20180417
  Transmission Date: 20180711
  Serious: Yes (Other)
  Sender: FDA-Public Use
  Company Number: RO-BRISTOL-MYERS SQUIBB COMPANY-BMS-2018-034402

PATIENT
  Age: 80 Year
  Sex: Female
  Weight: 60 kg

DRUGS (1)
  1. NIVOLUMAB [Suspect]
     Active Substance: NIVOLUMAB
     Indication: MALIGNANT MELANOMA
     Dosage: 3 MG/KG, Q2WK
     Route: 065
     Dates: start: 201707

REACTIONS (5)
  - Chronic obstructive pulmonary disease [Recovering/Resolving]
  - Pneumonia bacterial [Recovering/Resolving]
  - Pneumonitis [Recovering/Resolving]
  - Malignant neoplasm progression [Recovering/Resolving]
  - Pleural effusion [Recovering/Resolving]
